FAERS Safety Report 5677733-2 (Version None)
Quarter: 2008Q1

REPORT INFORMATION
  Report Type: 
  Country: None (occurrence: None)
  Receive Date: 20080324
  Receipt Date: 20070521
  Transmission Date: 20080703
  Serious: No
  Sender: FDA-Public Use
  Company Number: US-ABBOTT-07P-163-0369215-00

PATIENT
  Sex: Female
  Weight: 50.848 kg

DRUGS (2)
  1. BIAXIN XL [Suspect]
     Indication: SINUSITIS
     Route: 048
     Dates: start: 20070517, end: 20070519
  2. ESOMEPRAZOLE MAGNESIUM [Concomitant]
     Indication: GASTROOESOPHAGEAL REFLUX DISEASE
     Route: 048

REACTIONS (13)
  - DEPRESSION [None]
  - DYSGEUSIA [None]
  - DYSPHONIA [None]
  - FATIGUE [None]
  - HEADACHE [None]
  - MALAISE [None]
  - MOOD ALTERED [None]
  - NAUSEA [None]
  - NERVOUSNESS [None]
  - PHARYNGOLARYNGEAL PAIN [None]
  - SLEEP DISORDER [None]
  - TINNITUS [None]
  - URINE OUTPUT DECREASED [None]
